FAERS Safety Report 8820747 (Version 1)
Quarter: 2012Q4

REPORT INFORMATION
  Report Type: 
  Country: US (occurrence: US)
  Receive Date: 20121002
  Receipt Date: 20121002
  Transmission Date: 20130627
  Serious: Yes (Other)
  Sender: FDA-Public Use
  Company Number: US-PFIZER INC-2012239760

PATIENT
  Sex: Female

DRUGS (1)
  1. ROBITUSSIN PEAK COLD COUGH PLUS CHEST CONGESTION DM [Suspect]
     Indication: NASOPHARYNGITIS
     Dosage: UNK, 2x/day
     Route: 048
     Dates: start: 20120922, end: 20120925

REACTIONS (2)
  - Loss of consciousness [Unknown]
  - Malaise [Unknown]
